FAERS Safety Report 10862324 (Version 2)
Quarter: 2015Q1

REPORT INFORMATION
  Report Type: Report from Study
  Country: BR (occurrence: BR)
  Receive Date: 20150224
  Receipt Date: 20150326
  Transmission Date: 20150721
  Serious: Yes (Other)
  Sender: FDA-Public Use
  Company Number: PHHY2015BR021382

PATIENT
  Sex: Female

DRUGS (1)
  1. EXELON PATCH [Suspect]
     Active Substance: RIVASTIGMINE
     Indication: MEMORY IMPAIRMENT
     Dosage: 4.6 MG, UNK
     Route: 062

REACTIONS (5)
  - Memory impairment [Unknown]
  - Psychotic disorder [Unknown]
  - Product use issue [Unknown]
  - Drug ineffective [Unknown]
  - Syncope [Unknown]
